FAERS Safety Report 19856172 (Version 1)
Quarter: 2021Q3

REPORT INFORMATION
  Report Type: Spontaneous
  Country: DE (occurrence: DE)
  Receive Date: 20210920
  Receipt Date: 20210920
  Transmission Date: 20211014
  Serious: Yes (Hospitalization)
  Sender: FDA-Public Use
  Company Number: DE-TEVA-2021-DE-1952783

PATIENT
  Age: 41 Year
  Sex: Female

DRUGS (5)
  1. BUPROPION. [Concomitant]
     Active Substance: BUPROPION
     Dosage: 150 MILLIGRAM DAILY; 0?0?1?0, EXTENDED?RELEASE TABLETS
     Route: 048
  2. QUETIAPIN [Concomitant]
     Active Substance: QUETIAPINE
     Dosage: 50 MG, IF NECESSARY, PROLONGED?RELEASE TABLETS
     Route: 048
  3. OLANZAPIN [Suspect]
     Active Substance: OLANZAPINE
     Dosage: 5 MILLIGRAM DAILY; 0?0?0?1:MEDICATION ERRORS
     Route: 060
  4. ZOPICLON [Concomitant]
     Active Substance: ZOPICLONE
     Dosage: 7.5 MG, IF NECESSARY
     Route: 048
  5. OLANZAPIN [Suspect]
     Active Substance: OLANZAPINE
     Dosage: 20 MILLIGRAM DAILY; 0?0?0?1:MEDICATION ERRORS
     Route: 048

REACTIONS (5)
  - Nausea [Unknown]
  - Product prescribing error [Unknown]
  - Vertigo [Unknown]
  - Bipolar disorder [Unknown]
  - Dizziness [Unknown]
